FAERS Safety Report 4946813-9 (Version None)
Quarter: 2006Q1

REPORT INFORMATION
  Report Type: 
  Country: None (occurrence: None)
  Receive Date: 20060317
  Receipt Date: 20060301
  Transmission Date: 20060701
  Serious: Yes (Death)
  Sender: FDA-Public Use
  Company Number: US-MERCK-0603USA00960

PATIENT
  Age: 83 Year
  Sex: Male

DRUGS (12)
  1. VIOXX [Suspect]
     Route: 048
     Dates: start: 20010712, end: 20011223
  2. ASPIRIN [Concomitant]
     Route: 048
     Dates: start: 19921109
  3. VANCERIL [Concomitant]
     Route: 055
     Dates: start: 19990409
  4. LANOXIN [Concomitant]
     Route: 048
     Dates: start: 19990409
  5. FLOMAX [Concomitant]
     Route: 048
     Dates: start: 20000210
  6. LASIX [Concomitant]
     Route: 048
     Dates: start: 20000210
  7. TAMBOCOR [Concomitant]
     Route: 048
     Dates: start: 20000502
  8. AUGMENTIN '125' [Concomitant]
     Route: 048
     Dates: start: 20001214
  9. PANCOF XP [Concomitant]
     Route: 048
     Dates: start: 20010618
  10. CENTRUM SILVER [Concomitant]
     Route: 048
     Dates: start: 20010618
  11. ATROVENT [Concomitant]
     Route: 065
     Dates: start: 20010618
  12. DEMADEX [Concomitant]
     Route: 065

REACTIONS (17)
  - ANGINA PECTORIS [None]
  - ARTHRALGIA [None]
  - ATRIAL FLUTTER [None]
  - BRONCHITIS ACUTE [None]
  - BRONCHITIS CHRONIC [None]
  - CARDIO-RESPIRATORY ARREST [None]
  - CARDIOVASCULAR DISORDER [None]
  - CHRONIC OBSTRUCTIVE PULMONARY DISEASE [None]
  - CONSTIPATION [None]
  - GYNAECOMASTIA [None]
  - MYOCARDIAL INFARCTION [None]
  - OEDEMA PERIPHERAL [None]
  - OSTEOARTHRITIS [None]
  - PULMONARY FIBROSIS [None]
  - SINUSITIS [None]
  - SUDDEN CARDIAC DEATH [None]
  - URINARY RETENTION [None]
